FAERS Safety Report 4426533-X (Version None)
Quarter: 2004Q3

REPORT INFORMATION
  Report Type: 
  Country: None (occurrence: None)
  Receive Date: 20040816
  Receipt Date: 20020904
  Transmission Date: 20050211
  Serious: Yes (Hospitalization)
  Sender: FDA-Public Use
  Company Number: PHHO2002BE06584

PATIENT
  Age: 45 Year
  Sex: Female

DRUGS (1)
  1. TEGASEROD VS PLACEBO [Suspect]
     Indication: CONSTIPATION
     Dosage: 2 MG, BID
     Route: 048
     Dates: start: 20020802, end: 20020807

REACTIONS (2)
  - HYSTERECTOMY [None]
  - MENORRHAGIA [None]
